FAERS Safety Report 12841574 (Version 1)
Quarter: 2016Q4

REPORT INFORMATION
  Report Type: Spontaneous
  Country: US (occurrence: US)
  Receive Date: 20161012
  Receipt Date: 20161012
  Transmission Date: 20170207
  Serious: Yes (Other)
  Sender: FDA-Public Use
  Company Number: US-MYLANLABS-2016M1043239

PATIENT

DRUGS (4)
  1. CAPECITABINE TABLETS, USP [Suspect]
     Active Substance: CAPECITABINE
     Indication: HEPATIC CANCER
     Dosage: 1000 MG, BID
     Route: 048
     Dates: start: 201507
  2. CAPECITABINE TABLETS, USP [Suspect]
     Active Substance: CAPECITABINE
     Indication: COLON CANCER
  3. NO DRUG NAME [Suspect]
     Active Substance: UNSPECIFIED INGREDIENT
     Indication: COLON CANCER
  4. NO DRUG NAME [Suspect]
     Active Substance: UNSPECIFIED INGREDIENT
     Indication: HEPATIC CANCER
     Dosage: UNK
     Dates: start: 201608

REACTIONS (2)
  - Malignant neoplasm progression [None]
  - Drug ineffective [Not Recovered/Not Resolved]

NARRATIVE: CASE EVENT DATE: 201609
